FAERS Safety Report 18907835 (Version 5)
Quarter: 2022Q1

REPORT INFORMATION
  Report Type: Report from Study
  Country: US (occurrence: US)
  Receive Date: 20210217
  Receipt Date: 20220316
  Transmission Date: 20220423
  Serious: Yes (Hospitalization)
  Sender: FDA-Public Use
  Company Number: US-SEATTLE GENETICS-2021SGN00584

PATIENT
  Age: 30 Year
  Sex: Male

DRUGS (7)
  1. BRENTUXIMAB VEDOTIN [Suspect]
     Active Substance: BRENTUXIMAB VEDOTIN
     Indication: Hodgkin^s disease
     Dosage: 1.2 MG/KG, QCYCLE
     Route: 042
     Dates: start: 20200824, end: 20210125
  2. DOXORUBICIN [Suspect]
     Active Substance: DOXORUBICIN
     Indication: Hodgkin^s disease
     Dosage: 25 MG/M2, QCYCLE
     Route: 042
     Dates: start: 20200824, end: 20210125
  3. DACARBAZINE [Suspect]
     Active Substance: DACARBAZINE
     Indication: Hodgkin^s disease
     Dosage: 375 MG/M2, QCYCLE
     Route: 042
     Dates: start: 20200824, end: 20210125
  4. NIVOLUMAB [Suspect]
     Active Substance: NIVOLUMAB
     Indication: Hodgkin^s disease
     Dosage: 240 MG, QCYCLE
     Route: 042
     Dates: start: 20200824, end: 20210125
  5. FILGRASTIM [Concomitant]
     Active Substance: FILGRASTIM
     Indication: Hodgkin^s disease
     Dosage: 300 ?G, QCYCLE
     Route: 065
     Dates: start: 20200826, end: 20200901
  6. VALACYCLOVIR                       /01269701/ [Concomitant]
     Indication: Prophylaxis
     Dosage: 500 MG, BID
     Route: 065
     Dates: start: 20200826
  7. VITAMIN D                          /00107901/ [Concomitant]
     Indication: Vitamin D deficiency
     Dosage: 2000 U, QD
     Route: 065
     Dates: start: 20200824

REACTIONS (1)
  - Pneumonitis [Recovered/Resolved]

NARRATIVE: CASE EVENT DATE: 20210207
